FAERS Safety Report 4341471-9 (Version None)
Quarter: 2004Q2

REPORT INFORMATION
  Report Type: 
  Country: None (occurrence: None)
  Receive Date: 20040415
  Receipt Date: 20040329
  Transmission Date: 20050107
  Serious: Yes (Hospitalization, Other)
  Sender: FDA-Public Use
  Company Number: USA040363413

PATIENT
  Age: 54 Year
  Sex: Male
  Weight: 119 kg

DRUGS (7)
  1. HUMULIN R [Suspect]
     Indication: DIABETES MELLITUS
     Dates: start: 19610101
  2. HUMULIN N [Suspect]
     Indication: DIABETES MELLITUS
     Dates: start: 19610101
  3. HUMALOG [Suspect]
     Indication: DIABETES MELLITUS
  4. COUMADIN [Concomitant]
  5. COZAAR [Concomitant]
  6. LANTUS [Concomitant]
  7. ZOCOR [Concomitant]

REACTIONS (39)
  - ANGINA PECTORIS [None]
  - ANGIOGRAM [None]
  - ARTERIAL STENOSIS [None]
  - ASTHENIA [None]
  - BALANCE DISORDER [None]
  - BLINDNESS UNILATERAL [None]
  - BLOOD CHOLESTEROL INCREASED [None]
  - BLOOD CREATININE INCREASED [None]
  - BLOOD GLUCOSE INCREASED [None]
  - BLOOD PROLACTIN INCREASED [None]
  - CHEST PAIN [None]
  - COMA [None]
  - CORONARY ARTERY DISEASE [None]
  - DEPRESSION [None]
  - DIABETIC NEUROPATHY [None]
  - DIABETIC RETINOPATHY [None]
  - DIZZINESS [None]
  - EAR DISORDER [None]
  - EMOTIONAL DISTRESS [None]
  - FALL [None]
  - FATIGUE [None]
  - FEELING ABNORMAL [None]
  - FUNGAL INFECTION [None]
  - GLAUCOMA [None]
  - GYNAECOMASTIA [None]
  - HEAD INJURY [None]
  - HYPERTENSION [None]
  - MYOCARDIAL INFARCTION [None]
  - NIPPLE PAIN [None]
  - OPTIC NERVE NEOPLASM [None]
  - OSTEOMYELITIS [None]
  - PITUITARY ENLARGEMENT [None]
  - PURULENCE [None]
  - RENAL CYST [None]
  - RENAL IMPAIRMENT [None]
  - RETINAL HAEMORRHAGE [None]
  - STENT PLACEMENT [None]
  - TRIPLE VESSEL BYPASS GRAFT [None]
  - WEIGHT DECREASED [None]
